FAERS Safety Report 19013933 (Version 1)
Quarter: 2021Q1

REPORT INFORMATION
  Report Type: Spontaneous
  Country: US (occurrence: US)
  Receive Date: 20210316
  Receipt Date: 20210316
  Transmission Date: 20210420
  Serious: Yes (Other)
  Sender: FDA-Public Use
  Company Number: US-HIKMA PHARMACEUTICALS USA INC.-US-H14001-21-01169

PATIENT

DRUGS (4)
  1. HYDROXYCHLOROQUINE [Suspect]
     Active Substance: HYDROXYCHLOROQUINE
     Indication: IMMUNOSUPPRESSION
     Dosage: UNKNOWN
     Route: 064
  2. AZATHIOPRINE. [Suspect]
     Active Substance: AZATHIOPRINE
     Indication: IMMUNOSUPPRESSION
     Dosage: UNKNOWN
     Route: 064
  3. INFLIXIMAB [Suspect]
     Active Substance: INFLIXIMAB
     Indication: IMMUNOSUPPRESSION
     Dosage: UNKNOWN
     Route: 064
  4. FINGOLIMOD. [Suspect]
     Active Substance: FINGOLIMOD
     Indication: IMMUNOSUPPRESSION
     Dosage: UNKNOWN
     Route: 064

REACTIONS (4)
  - Lymphopenia [Recovering/Resolving]
  - Combined immunodeficiency [Recovering/Resolving]
  - Foetal exposure during pregnancy [Recovered/Resolved]
  - Thrombocytosis [Recovering/Resolving]
